FAERS Safety Report 6462045-X (Version None)
Quarter: 2009Q4

REPORT INFORMATION
  Report Type: 
  Country: None (occurrence: None)
  Receive Date: 20091130
  Receipt Date: 20091113
  Transmission Date: 20100525
  Serious: Yes (Other)
  Sender: FDA-Public Use
  Company Number: PHHY2009BR50035

PATIENT
  Age: 34 Year
  Sex: Male

DRUGS (5)
  1. LEPONEX [Suspect]
     Dosage: 100 MG, UNK
     Dates: start: 20050101
  2. LEPONEX [Suspect]
     Dosage: 200MG
  3. LITHIUM [Concomitant]
     Dosage: UNK
  4. ANTIVIRALS NOS [Concomitant]
  5. ACYCLOVIR [Concomitant]

REACTIONS (4)
  - BLOOD DISORDER [None]
  - INFECTION [None]
  - INFLUENZA [None]
  - SPERM COUNT ZERO [None]
